FAERS Safety Report 12480382 (Version 2)
Quarter: 2016Q2

REPORT INFORMATION
  Report Type: Spontaneous
  Country: AU (occurrence: AU)
  Receive Date: 20160620
  Receipt Date: 20160621
  Transmission Date: 20160815
  Serious: Yes (Other)
  Sender: FDA-Public Use
  Company Number: AU-MYLANLABS-2016M1025158

PATIENT

DRUGS (2)
  1. DIABEX [Suspect]
     Active Substance: METFORMIN HYDROCHLORIDE
     Indication: HYPERGLYCAEMIA
     Dosage: 2 G, QD
     Route: 048
  2. DIABEX [Suspect]
     Active Substance: METFORMIN HYDROCHLORIDE
     Dosage: 1 DF, BID
     Route: 048

REACTIONS (3)
  - Diabetic eye disease [Not Recovered/Not Resolved]
  - Eye oedema [Not Recovered/Not Resolved]
  - Diarrhoea [Not Recovered/Not Resolved]
